FAERS Safety Report 6015199-3 (Version None)
Quarter: 2008Q4

REPORT INFORMATION
  Report Type: 
  Country: None (occurrence: None)
  Receive Date: 20081218
  Receipt Date: 20081202
  Transmission Date: 20090506
  Serious: Yes (Hospitalization, Other)
  Sender: FDA-Public Use
  Company Number: KV200800819

PATIENT
  Age: 88 Year
  Sex: Female
  Weight: 86.6 kg

DRUGS (14)
  1. ISOSORBIDE MONONITRATE [Suspect]
     Indication: CHEST PAIN
     Dosage: 60 MG, QD, ORAL
     Route: 048
     Dates: start: 20070101
  2. NAMENDA [Concomitant]
  3. ARICEPT [Concomitant]
  4. DONEPEZIL HCL [Concomitant]
  5. LANTUS [Concomitant]
  6. SENOKOT /00142201/(SENNA ALEXANDRINA) [Concomitant]
  7. PROVENTIL /00139501/(SALBUTAMOL) [Concomitant]
  8. ASPIRIN [Concomitant]
  9. PLAVIX [Concomitant]
  10. GLIPIZIDE XL (GLIPIZIDE) [Concomitant]
  11. MICARDIS [Concomitant]
  12. MICARDIS [Concomitant]
  13. DIOVAN [Concomitant]
  14. METFORMIN HCL [Concomitant]

REACTIONS (13)
  - ASTHENIA [None]
  - BLOOD PRESSURE FLUCTUATION [None]
  - CEREBROVASCULAR ACCIDENT [None]
  - DIZZINESS [None]
  - DYSPEPSIA [None]
  - DYSPNOEA [None]
  - HALLUCINATION [None]
  - INSOMNIA [None]
  - PALPITATIONS [None]
  - PRODUCT QUALITY ISSUE [None]
  - RENAL FAILURE [None]
  - URINARY TRACT INFECTION [None]
  - WHEEZING [None]
